FAERS Safety Report 7246864-8 (Version None)
Quarter: 2011Q1

REPORT INFORMATION
  Report Type: 
  Country: None (occurrence: None)
  Receive Date: 20110127
  Receipt Date: 20110120
  Transmission Date: 20110831
  Serious: Yes (Hospitalization)
  Sender: FDA-Public Use
  Company Number: PHHO2009US15544

PATIENT
  Sex: Male

DRUGS (9)
  1. LOMOTIL [Concomitant]
  2. AFINITOR [Suspect]
     Indication: NEOPLASM
     Dosage: 5 MG
     Route: 048
     Dates: start: 20091007
  3. AVASTIN [Suspect]
     Indication: NEOPLASM
     Dosage: UNK
     Route: 042
     Dates: start: 20091007
  4. NAPROXEN [Concomitant]
  5. PROTONIX [Concomitant]
  6. CAPECITABINE [Suspect]
     Indication: NEOPLASM
     Dosage: UNK
     Route: 048
     Dates: start: 20091007
  7. ALLOPURINOL [Concomitant]
  8. OXALIPLATIN [Suspect]
     Indication: NEOPLASM
     Dosage: 308MG
     Route: 042
     Dates: start: 20091007
  9. PERCOCET [Concomitant]

REACTIONS (4)
  - CHOLELITHIASIS [None]
  - CHOLECYSTITIS CHRONIC [None]
  - ABDOMINAL PAIN UPPER [None]
  - CHOLECYSTECTOMY [None]
